FAERS Safety Report 8297754-3 (Version None)
Quarter: 2012Q2

REPORT INFORMATION
  Report Type: 
  Country: None (occurrence: None)
  Receive Date: 20120419
  Receipt Date: 20120410
  Transmission Date: 20120825
  Serious: Yes (Hospitalization)
  Sender: FDA-Public Use
  Company Number: NZ-B.I. PHARMACEUTICALS,INC./RIDGEFIELD-2012-EU-02070GD

PATIENT
  Age: 62 Year
  Sex: Male
  Weight: 98 kg

DRUGS (10)
  1. ALLOPURINOL [Concomitant]
  2. ATORVASTATIN [Concomitant]
  3. CARBAMAZEPINE [Concomitant]
  4. METFORMIN HCL [Concomitant]
  5. DIGOXIN [Concomitant]
  6. GILCLAZIDE [Concomitant]
  7. DABIGATRAN [Suspect]
     Indication: ATRIAL FIBRILLATION
     Dosage: 220 MG
  8. OMEPRAZOLE [Concomitant]
  9. CILAZAPRIL [Concomitant]
  10. METOPROLOL TARTRATE [Concomitant]

REACTIONS (2)
  - JOINT SWELLING [None]
  - HAEMARTHROSIS [None]
